FAERS Safety Report 9752193 (Version 1)
Quarter: 2013Q4

REPORT INFORMATION
  Report Type: Spontaneous
  Country: US (occurrence: None)
  Receive Date: 20131211
  Receipt Date: 20131211
  Transmission Date: 20140711
  Serious: Yes (Hospitalization)
  Sender: FDA-Public Use
  Company Number: None

PATIENT
  Age: 19 Year
  Sex: 0
  Weight: 35.8 kg

DRUGS (5)
  1. OXCARBAZEPINE [Suspect]
     Indication: RETT^S DISORDER
     Dosage: 5 CC BID G-TUBE
     Dates: start: 2005
  2. OXCARBAZEPINE [Suspect]
     Indication: DIAGNOSTIC PROCEDURE
     Dosage: 5 CC BID G-TUBE
     Dates: start: 2005
  3. TOPAMAX [Concomitant]
  4. KLONOPIN [Concomitant]
  5. DIASTAT ACU DIAL [Concomitant]

REACTIONS (2)
  - Product substitution issue [None]
  - Drug ineffective [None]
